FAERS Safety Report 7775830-9 (Version None)
Quarter: 2011Q3

REPORT INFORMATION
  Report Type: 
  Country: None (occurrence: None)
  Receive Date: 20110923
  Receipt Date: 20110920
  Transmission Date: 20111222
  Serious: Yes (Other)
  Sender: FDA-Public Use
  Company Number: PHHY2011US65149

PATIENT
  Sex: Female
  Weight: 129 kg

DRUGS (4)
  1. ZOMETA [Suspect]
     Indication: OSTEOPOROSIS
     Dosage: UNK
     Route: 042
     Dates: start: 20110717, end: 20110717
  2. CALCIUM CARBONATE [Concomitant]
     Dosage: 120 MG, DAILY
     Route: 048
  3. PRILOSEC [Concomitant]
     Dosage: 20 MG,
     Route: 048
  4. VITAMIN D [Concomitant]
     Dosage: 50,000 WEEKLY FOUR
     Route: 048

REACTIONS (3)
  - PYREXIA [None]
  - IRITIS [None]
  - INFLUENZA LIKE ILLNESS [None]
